FAERS Safety Report 8206275-5 (Version None)
Quarter: 2012Q1

REPORT INFORMATION
  Report Type: 
  Country: None (occurrence: None)
  Receive Date: 20120313
  Receipt Date: 20120305
  Transmission Date: 20120608
  Serious: Yes (Hospitalization)
  Sender: FDA-Public Use
  Company Number: PHHY2012FR020369

PATIENT
  Sex: Female

DRUGS (9)
  1. TRIMEPRAZINE TARTRATE [Suspect]
     Dosage: 10 DROPS IN THE EVENING
     Route: 048
     Dates: start: 20120202
  2. TRIHEXYPHENIDYL HYDROCHLORIDE [Concomitant]
     Dosage: 5 MG, DAILY
     Route: 048
     Dates: start: 20120113, end: 20120207
  3. ALPRAZOLAM [Concomitant]
     Dosage: 0.5 MG,DAILY
  4. CLOZAPINE [Suspect]
     Indication: PSYCHIATRIC SYMPTOM
     Dosage: 37.5 MG, DAILY
     Route: 048
     Dates: start: 20120131, end: 20120207
  5. RISPERDAL [Concomitant]
     Dosage: 4 MG,DAILY
  6. ABILIFY [Suspect]
     Route: 048
     Dates: start: 20120117, end: 20120130
  7. IMOVANE [Concomitant]
     Dates: start: 20120113
  8. ATARAX [Concomitant]
     Dates: start: 20120204
  9. RISPERDAL CONSTA [Suspect]
     Route: 030
     Dates: start: 20111227, end: 20120203

REACTIONS (8)
  - NEUROLEPTIC MALIGNANT SYNDROME [None]
  - PYREXIA [None]
  - URINARY TRACT INFECTION [None]
  - HYPERTENSION [None]
  - TACHYCARDIA [None]
  - BLOOD CREATINE PHOSPHOKINASE INCREASED [None]
  - COGWHEEL RIGIDITY [None]
  - CONFUSIONAL STATE [None]
